FAERS Safety Report 9780089 (Version 2)
Quarter: 2014Q1

REPORT INFORMATION
  Report Type: Spontaneous
  Country: JP (occurrence: JP)
  Receive Date: 20131223
  Receipt Date: 20140224
  Transmission Date: 20141002
  Serious: Yes (Other)
  Sender: FDA-Public Use
  Company Number: JP-ABBVIE-13P-087-1182374-00

PATIENT
  Age: 39 Year
  Sex: Male

DRUGS (5)
  1. LOPINAVIR/RITONAVIR [Suspect]
     Indication: ACQUIRED IMMUNODEFICIENCY SYNDROME
  2. ABACAVIR W/LAMIVUDINE [Suspect]
     Indication: ACQUIRED IMMUNODEFICIENCY SYNDROME
  3. RALTEGRAVIR [Suspect]
     Indication: ACQUIRED IMMUNODEFICIENCY SYNDROME
  4. ATOVAQUONE [Concomitant]
     Indication: OPPORTUNISTIC INFECTION PROPHYLAXIS
  5. AMPHOTERICIN B [Concomitant]
     Indication: OPPORTUNISTIC INFECTION PROPHYLAXIS

REACTIONS (3)
  - Histiocytosis haematophagic [Recovering/Resolving]
  - Viral infection [Recovering/Resolving]
  - Disseminated intravascular coagulation [Recovering/Resolving]
